FAERS Safety Report 14559357 (Version 1)
Quarter: 2018Q1

REPORT INFORMATION
  Report Type: Spontaneous
  Country: US (occurrence: US)
  Receive Date: 20180221
  Receipt Date: 20180221
  Transmission Date: 20180509
  Serious: Yes (Hospitalization, Disabling)
  Sender: FDA-Public Use
  Company Number: None

PATIENT
  Age: 74 Year
  Sex: Female
  Weight: 63.5 kg

DRUGS (11)
  1. BETAMETHASONE VALERATE. [Concomitant]
     Active Substance: BETAMETHASONE VALERATE
  2. MYRBETRIQ [Suspect]
     Active Substance: MIRABEGRON
     Indication: HYPERTONIC BLADDER
     Dosage: DOSE - 3 TABLETS - PO - QD
     Route: 048
     Dates: start: 20171101, end: 20171116
  3. TYLENOL [Concomitant]
     Active Substance: ACETAMINOPHEN
  4. NEFAZODONE (SERZONE) [Concomitant]
  5. VITAMIN D [Concomitant]
     Active Substance: CHOLECALCIFEROL
  6. CALCIUM + D [Concomitant]
     Active Substance: CALCIUM\VITAMIN D
  7. MIRALAX [Concomitant]
     Active Substance: POLYETHYLENE GLYCOL 3350
  8. OXYBUTYNIN CR (DITROPAN-XL) [Concomitant]
  9. MYRBETRIQ [Suspect]
     Active Substance: MIRABEGRON
     Indication: INCONTINENCE
     Dosage: DOSE - 3 TABLETS - PO - QD
     Route: 048
     Dates: start: 20171101, end: 20171116
  10. MULTIVITAMIN [Concomitant]
     Active Substance: VITAMINS
  11. ZOFRAN [Concomitant]
     Active Substance: ONDANSETRON HYDROCHLORIDE

REACTIONS (1)
  - Hypersensitivity [None]

NARRATIVE: CASE EVENT DATE: 20171116
